FAERS Safety Report 20469386 (Version 2)
Quarter: 2022Q2

REPORT INFORMATION
  Report Type: Spontaneous
  Country: FR (occurrence: FR)
  Receive Date: 20220214
  Receipt Date: 20220418
  Transmission Date: 20220721
  Serious: Yes (Other)
  Sender: FDA-Public Use
  Company Number: None

PATIENT
  Age: 75 Year
  Sex: Male
  Weight: 62.5 kg

DRUGS (4)
  1. DULOXETINE [Suspect]
     Active Substance: DULOXETINE
     Indication: Neuralgia
     Dosage: 30 MILLIGRAM, QD
     Route: 048
  2. GABAPENTIN [Suspect]
     Active Substance: GABAPENTIN
     Indication: Neuralgia
     Dosage: 3000 MILLIGRAM, QD
     Route: 048
  3. CLOMIPRAMINE [Suspect]
     Active Substance: CLOMIPRAMINE
     Indication: Neuralgia
     Dosage: 25 MILLIGRAM, QD
     Route: 048
  4. CANNABIDIOL [Suspect]
     Active Substance: CANNABIDIOL
     Indication: Neuralgia
     Dosage: 2.4 MILLILITER, QD (120 MG/DAY OF CBD)
     Route: 048
     Dates: start: 20210930, end: 20211208

REACTIONS (2)
  - Hallucination [Not Recovered/Not Resolved]
  - Illusion [Not Recovered/Not Resolved]

NARRATIVE: CASE EVENT DATE: 20211124
